FAERS Safety Report 7813059-6 (Version None)
Quarter: 2011Q4

REPORT INFORMATION
  Report Type: 
  Country: None (occurrence: None)
  Receive Date: 20111013
  Receipt Date: 20110930
  Transmission Date: 20120403
  Serious: Yes (Hospitalization)
  Sender: FDA-Public Use
  Company Number: PHEH2011US05695

PATIENT
  Sex: Male
  Weight: 116 kg

DRUGS (12)
  1. LIPITOR [Concomitant]
     Dosage: 80 MG, DAILY
     Route: 048
  2. LASIX [Concomitant]
     Dosage: 40 MG, DAILY
     Route: 048
  3. GILENYA [Suspect]
     Indication: MULTIPLE SCLEROSIS
     Dosage: 0.5 MG, DAILY
     Route: 048
     Dates: start: 20110801, end: 20110823
  4. BENICAR [Concomitant]
     Dosage: 0.5 DF, DAILY
  5. JANUMET [Concomitant]
     Dosage: UNK MG, BID
     Route: 048
  6. PLAVIX [Concomitant]
     Dosage: 75 MG, DAILY
     Route: 048
  7. DIGOXIN [Concomitant]
     Dosage: 0.125 MG, DAILY
     Route: 048
  8. POTASSIUM [Concomitant]
     Dosage: 10 MEQ, DAILY
     Route: 048
  9. PANTOPRAZOLE [Concomitant]
     Dosage: 20 MG, QHS
  10. COREG [Concomitant]
     Dosage: 6.25 MG, BID
     Route: 048
  11. ASPIRIN [Concomitant]
     Dosage: 81 MG, DAILY
  12. NOVOLOG [Concomitant]
     Dosage: UNK UKN, PRN

REACTIONS (29)
  - CHILLS [None]
  - SPEECH DISORDER [None]
  - HYPOTENSION [None]
  - MYELITIS TRANSVERSE [None]
  - CONVULSION [None]
  - ASTHENIA [None]
  - NORMOCHROMIC NORMOCYTIC ANAEMIA [None]
  - GAIT DISTURBANCE [None]
  - HYPERREFLEXIA [None]
  - MUSCULOSKELETAL PAIN [None]
  - ABASIA [None]
  - DECREASED APPETITE [None]
  - PYREXIA [None]
  - GASTROOESOPHAGEAL REFLUX DISEASE [None]
  - DIPLOPIA [None]
  - COUGH [None]
  - WHITE BLOOD CELL COUNT DECREASED [None]
  - PARAPARESIS [None]
  - MUSCULAR WEAKNESS [None]
  - POLYDIPSIA [None]
  - TREMOR [None]
  - MULTIPLE SCLEROSIS RELAPSE [None]
  - SPINAL CORD INJURY THORACIC [None]
  - ATAXIA [None]
  - FALL [None]
  - SYNCOPE [None]
  - VISION BLURRED [None]
  - BALANCE DISORDER [None]
  - GAIT SPASTIC [None]
